APPROVED DRUG PRODUCT: LOPERAMIDE HYDROCHLORIDE
Active Ingredient: LOPERAMIDE HYDROCHLORIDE
Strength: 1MG/5ML
Dosage Form/Route: SOLUTION;ORAL
Application: A073478 | Product #001
Applicant: TEVA PHARMACEUTICALS USA INC
Approved: Jun 23, 1995 | RLD: No | RS: No | Type: DISCN